FAERS Safety Report 21135804 (Version 1)
Quarter: 2022Q3

REPORT INFORMATION
  Report Type: Spontaneous
  Country: US (occurrence: US)
  Receive Date: 20220727
  Receipt Date: 20220727
  Transmission Date: 20221027
  Serious: Yes (Hospitalization)
  Sender: FDA-Public Use
  Company Number: US-VELOXIS PHARMACEUTICALS-2021VELUS-000863

PATIENT
  Sex: Male

DRUGS (4)
  1. ENVARSUS XR [Suspect]
     Active Substance: TACROLIMUS
     Indication: Prophylaxis against transplant rejection
     Dosage: 3 MILLIGRAM
  2. ENVARSUS XR [Suspect]
     Active Substance: TACROLIMUS
     Dosage: 2 MILLIGRAM
  3. ENVARSUS XR [Suspect]
     Active Substance: TACROLIMUS
     Dosage: 3 MILLIGRAM
  4. ENVARSUS XR [Suspect]
     Active Substance: TACROLIMUS
     Dosage: 2 MILLIGRAM

REACTIONS (3)
  - Viral infection [Unknown]
  - Urinary tract infection [Unknown]
  - Drug level fluctuating [Unknown]
